FAERS Safety Report 8789615 (Version 1)
Quarter: 2012Q4

REPORT INFORMATION
  Report Type: Spontaneous
  Country: US (occurrence: None)
  Receive Date: 20120910
  Receipt Date: 20120910
  Transmission Date: 20130627
  Serious: Yes (Disabling)
  Sender: FDA-Public Use
  Company Number: None

PATIENT
  Age: 79 Year
  Sex: Male
  Weight: 77.11 kg

DRUGS (1)
  1. LISINOPRIL [Suspect]
     Indication: BLOOD PRESSURE
     Dosage: 20 mg 1  by  mouth
     Route: 048
     Dates: start: 2004, end: 2012

REACTIONS (4)
  - Musculoskeletal pain [None]
  - Arthralgia [None]
  - Gait disturbance [None]
  - Impaired driving ability [None]
